FAERS Safety Report 25432080 (Version 1)
Quarter: 2025Q2

REPORT INFORMATION
  Report Type: Spontaneous
  Country: US (occurrence: US)
  Receive Date: 20250613
  Receipt Date: 20250613
  Transmission Date: 20250716
  Serious: Yes (Other)
  Sender: RANBAXY
  Company Number: US-SUN PHARMACEUTICAL INDUSTRIES LTD-2025R1-511368

PATIENT
  Age: 77 Year
  Sex: Male

DRUGS (2)
  1. LAMOTRIGINE [Interacting]
     Active Substance: LAMOTRIGINE
     Indication: Bipolar I disorder
     Dosage: 400 MILLIGRAM, QD
     Route: 065
  2. ESKETAMINE [Interacting]
     Active Substance: ESKETAMINE
     Indication: Bipolar I disorder
     Dosage: 64 MILLIGRAM, 2/WEEK
     Route: 065

REACTIONS (2)
  - Drug interaction [Unknown]
  - Condition aggravated [Unknown]
